FAERS Safety Report 4333856-1 (Version None)
Quarter: 2004Q2

REPORT INFORMATION
  Report Type: 
  Country: None (occurrence: None)
  Receive Date: 20040406
  Receipt Date: 20040406
  Transmission Date: 20050107
  Serious: No
  Sender: FDA-Public Use
  Company Number: None

PATIENT
  Age: 40 Year
  Sex: Female
  Weight: 68.0396 kg

DRUGS (3)
  1. GAMMAR-P I.V. [Suspect]
     Indication: SYSTEMIC LUPUS ERYTHEMATOSUS
     Dosage: 30 GM Q 24 H X 3 IV
     Route: 042
     Dates: start: 20040322, end: 20040324
  2. PREDNISONE [Concomitant]
  3. PREVACID [Concomitant]

REACTIONS (1)
  - URTICARIA [None]
